FAERS Safety Report 5197744-3 (Version None)
Quarter: 2006Q4

REPORT INFORMATION
  Report Type: 
  Country: None (occurrence: None)
  Receive Date: 20061227
  Receipt Date: 20061213
  Transmission Date: 20070319
  Serious: Yes (Other)
  Sender: FDA-Public Use
  Company Number: 2006144111

PATIENT
  Age: 24 Year
  Sex: Female
  Weight: 66 kg

DRUGS (8)
  1. DEPO-PROVERA [Suspect]
     Indication: CONTRACEPTION
     Dosage: 150 MG (150 MG, EVERY THREE MONTHS)
     Dates: start: 20060110, end: 20060110
  2. DEPO-PROVERA [Suspect]
     Indication: CONTRACEPTION
     Dosage: 150 MG (150 MG, EVERY THREE MONTHS)
     Dates: start: 20060403, end: 20060403
  3. DEPO-PROVERA [Suspect]
     Indication: CONTRACEPTION
     Dosage: 150 MG (150 MG, EVERY THREE MONTHS)
     Dates: start: 20060615, end: 20060615
  4. DEPO-PROVERA [Suspect]
     Indication: CONTRACEPTION
     Dosage: 150 MG (150 MG, EVERY THREE MONTHS)
     Dates: start: 20060917, end: 20060917
  5. DEPO-PROVERA [Suspect]
  6. DEPO-PROVERA [Suspect]
  7. QVAR (BECLOMETASONE DIPROPIONATE) [Concomitant]
  8. SALBUTAMOL (SALBUTAMOL) [Concomitant]

REACTIONS (3)
  - ABORTION SPONTANEOUS [None]
  - METABOLIC DISORDER [None]
  - PREGNANCY WITH INJECTABLE CONTRACEPTIVE [None]
